FAERS Safety Report 12323726 (Version 1)
Quarter: 2016Q2

REPORT INFORMATION
  Report Type: Report from Study
  Country: US (occurrence: US)
  Receive Date: 20160502
  Receipt Date: 20160502
  Transmission Date: 20160815
  Serious: Yes (Hospitalization)
  Sender: FDA-Public Use
  Company Number: US-ACTELION-A-US2016-135410

PATIENT
  Age: 68 Year
  Sex: Male

DRUGS (32)
  1. PRAVASTATIN [Concomitant]
     Active Substance: PRAVASTATIN\PRAVASTATIN SODIUM
  2. FERROUS SULFATE. [Concomitant]
     Active Substance: FERROUS SULFATE
  3. DIPHENHYDRAMINE. [Concomitant]
     Active Substance: DIPHENHYDRAMINE
  4. BUMETANIDE. [Concomitant]
     Active Substance: BUMETANIDE
  5. TRAMADOL. [Concomitant]
     Active Substance: TRAMADOL
  6. COLCRYS [Concomitant]
     Active Substance: COLCHICINE
  7. LANSOPRAZOLE. [Concomitant]
     Active Substance: LANSOPRAZOLE
  8. PREVACID [Concomitant]
     Active Substance: LANSOPRAZOLE
  9. SERTRALINE [Concomitant]
     Active Substance: SERTRALINE HYDROCHLORIDE
  10. MEPHYTON [Concomitant]
     Active Substance: PHYTONADIONE
  11. SPIRONOLACTONE. [Concomitant]
     Active Substance: SPIRONOLACTONE
  12. METOLAZONE. [Concomitant]
     Active Substance: METOLAZONE
  13. ASTELIN [Concomitant]
     Active Substance: AZELASTINE HYDROCHLORIDE
  14. FLUTICASONE [Concomitant]
     Active Substance: FLUTICASONE\FLUTICASONE PROPIONATE
  15. AMIODARONE [Concomitant]
     Active Substance: AMIODARONE
  16. COUMADIN [Concomitant]
     Active Substance: WARFARIN SODIUM
  17. FUROSEMIDE. [Concomitant]
     Active Substance: FUROSEMIDE
  18. CRESTOR [Concomitant]
     Active Substance: ROSUVASTATIN CALCIUM
  19. METOPROLOL. [Concomitant]
     Active Substance: METOPROLOL
  20. ASPIRIN. [Concomitant]
     Active Substance: ASPIRIN
  21. MAGNESIUM OXIDE. [Concomitant]
     Active Substance: MAGNESIUM OXIDE
  22. PLAVIX [Concomitant]
     Active Substance: CLOPIDOGREL BISULFATE
  23. TRACLEER [Suspect]
     Active Substance: BOSENTAN
     Indication: PULMONARY HYPERTENSION
     Dosage: 125 MG, BID
     Route: 048
     Dates: start: 20131016
  24. PREDNISONE. [Concomitant]
     Active Substance: PREDNISONE
  25. GLIMEPIRIDE. [Concomitant]
     Active Substance: GLIMEPIRIDE
  26. TRAZODONE [Concomitant]
     Active Substance: TRAZODONE HYDROCHLORIDE
  27. ALPRAZOLAM. [Concomitant]
     Active Substance: ALPRAZOLAM
  28. CAPTOPRIL. [Concomitant]
     Active Substance: CAPTOPRIL
  29. RANITIDINE. [Concomitant]
     Active Substance: RANITIDINE
  30. COLCHICINE. [Concomitant]
     Active Substance: COLCHICINE
  31. POTASSIUM CHLORIDE. [Concomitant]
     Active Substance: POTASSIUM CHLORIDE
  32. PROMETHAZINE [Concomitant]
     Active Substance: PROMETHAZINE\PROMETHAZINE HYDROCHLORIDE

REACTIONS (1)
  - Complication associated with device [Unknown]
